FAERS Safety Report 9479302 (Version 2)
Quarter: 2013Q4

REPORT INFORMATION
  Report Type: Spontaneous
  Country: GB (occurrence: GB)
  Receive Date: 20130827
  Receipt Date: 20131115
  Transmission Date: 20140711
  Serious: Yes (Death, Life-Threatening, Hospitalization, Other)
  Sender: FDA-Public Use
  Company Number: GB-ACTAVIS-2013-14986

PATIENT
  Sex: 0

DRUGS (6)
  1. DONEPEZIL HYDROCHLORIDE (UNKNOWN) [Suspect]
     Indication: DEMENTIA
     Dosage: 5 MG, UNK
     Route: 048
     Dates: start: 20120723, end: 20130723
  2. AMITRIPTYLINE [Concomitant]
     Indication: PRODUCT USED FOR UNKNOWN INDICATION
     Dosage: 10 MG, DAILY
     Route: 065
  3. CALCICHEW D3 FORTE [Concomitant]
     Indication: PRODUCT USED FOR UNKNOWN INDICATION
     Dosage: 1 DF, BID
     Route: 065
  4. PROPRANOLOL                        /00030002/ [Concomitant]
     Indication: PRODUCT USED FOR UNKNOWN INDICATION
     Dosage: 80 MG, DAILY
     Route: 065
  5. GANFORT [Concomitant]
     Indication: PRODUCT USED FOR UNKNOWN INDICATION
     Dosage: 1 DF, DAILY
     Route: 065
  6. TRAMADOL [Concomitant]
     Indication: PRODUCT USED FOR UNKNOWN INDICATION
     Dosage: 50 MG, UNK
     Route: 065

REACTIONS (3)
  - Melaena [Fatal]
  - Duodenal ulcer haemorrhage [Not Recovered/Not Resolved]
  - Duodenal ulcer [Not Recovered/Not Resolved]
